FAERS Safety Report 8349240-X (Version None)
Quarter: 2012Q2

REPORT INFORMATION
  Report Type: 
  Country: None (occurrence: None)
  Receive Date: 20120510
  Receipt Date: 20120503
  Transmission Date: 20120825
  Serious: Yes (Hospitalization)
  Sender: FDA-Public Use
  Company Number: PHHY2012AU033112

PATIENT
  Sex: Female

DRUGS (5)
  1. METFORMIN HCL [Concomitant]
     Indication: DIABETES MELLITUS
     Dosage: 1 G, TID
     Route: 048
  2. DILTIAZEM [Concomitant]
     Indication: BLOOD PRESSURE
     Dosage: 60 MG, BID
     Route: 048
  3. DULOXETINE HYDROCHLORIDE [Concomitant]
     Indication: SCHIZOAFFECTIVE DISORDER
     Dosage: 60 MG, DAILY
     Route: 048
  4. CLOZARIL [Suspect]
     Indication: SCHIZOAFFECTIVE DISORDER
     Dosage: 250 MG, UNK
     Route: 048
     Dates: start: 20081119
  5. ATORVASTATIN CALCIUM [Concomitant]
     Indication: BLOOD CHOLESTEROL INCREASED
     Dosage: 20 MG PER DAY
     Route: 048

REACTIONS (4)
  - CHEST PAIN [None]
  - TACHYCARDIA [None]
  - C-REACTIVE PROTEIN ABNORMAL [None]
  - DYSPNOEA [None]
